FAERS Safety Report 9616573 (Version 2)
Quarter: 2013Q4

REPORT INFORMATION
  Report Type: Spontaneous
  Country: JP (occurrence: JP)
  Receive Date: 20131011
  Receipt Date: 20131028
  Transmission Date: 20140711
  Serious: Yes (Other)
  Sender: FDA-Public Use
  Company Number: JP-009507513-1310JPN005320

PATIENT
  Age: 63 Year
  Sex: Female

DRUGS (4)
  1. BONALON [Suspect]
     Indication: OSTEOPOROSIS
     Dosage: 35 MG, QW
     Route: 048
     Dates: start: 20130821, end: 20130830
  2. PREDONINE [Concomitant]
     Indication: SCLERODERMA
     Dosage: 10 MG/ DAY
     Route: 048
     Dates: start: 20130821, end: 2013
  3. PREDONINE [Concomitant]
     Dosage: 5 MG/ DAY
     Route: 048
     Dates: start: 2013
  4. FAMOSTAGINE D [Concomitant]
     Indication: GASTRITIS
     Dosage: 20 MG/ DAY
     Route: 048
     Dates: start: 20130821

REACTIONS (4)
  - Hypoaesthesia oral [Not Recovered/Not Resolved]
  - Paraesthesia oral [Not Recovered/Not Resolved]
  - Lip swelling [Not Recovered/Not Resolved]
  - Dysgeusia [Not Recovered/Not Resolved]
